FAERS Safety Report 7892815-2 (Version None)
Quarter: 2011Q4

REPORT INFORMATION
  Report Type: 
  Country: None (occurrence: None)
  Receive Date: 20111104
  Receipt Date: 20111028
  Transmission Date: 20120403
  Serious: Yes (Other)
  Sender: FDA-Public Use
  Company Number: VE-BAYER-2011-105291

PATIENT
  Age: 58 Year
  Sex: Female

DRUGS (2)
  1. AVELOX [Suspect]
     Indication: POSTOPERATIVE CARE
     Dosage: 400 MG, QD
     Route: 042
     Dates: start: 20110820, end: 20110827
  2. AVELOX [Suspect]
     Dosage: 400 MG, QD
     Route: 048
     Dates: start: 20110828, end: 20110902

REACTIONS (2)
  - PNEUMONIA [None]
  - PYREXIA [None]
